FAERS Safety Report 5408497-5 (Version None)
Quarter: 2007Q3

REPORT INFORMATION
  Report Type: 
  Country: None (occurrence: None)
  Receive Date: 20070806
  Receipt Date: 20070726
  Transmission Date: 20080115
  Serious: Yes (Other)
  Sender: FDA-Public Use
  Company Number: CHPA2007US08174

PATIENT
  Age: 56 Year
  Sex: Male

DRUGS (4)
  1. NICOTINE [Suspect]
     Indication: SMOKING CESSATION THERAPY
  2. NICOTINE [Suspect]
     Indication: SMOKING CESSATION THERAPY
     Dosage: 21 MG, QD, TRANSDERMAL
     Route: 062
  3. DRUG THERAPY NOS (DRUG THERAPY NOS) [Concomitant]
  4. PRILOSEC [Concomitant]

REACTIONS (5)
  - CONDITION AGGRAVATED [None]
  - EPISTAXIS [None]
  - HEADACHE [None]
  - MIDDLE INSOMNIA [None]
  - NIGHTMARE [None]
